FAERS Safety Report 6409944-2 (Version None)
Quarter: 2009Q4

REPORT INFORMATION
  Report Type: 
  Country: None (occurrence: None)
  Receive Date: 20091022
  Receipt Date: 20091012
  Transmission Date: 20100525
  Serious: Yes (Hospitalization)
  Sender: FDA-Public Use
  Company Number: US-ABBOTT-09P-163-0602056-00

PATIENT
  Sex: Female
  Weight: 63.56 kg

DRUGS (1)
  1. SYNTHROID [Suspect]
     Indication: HYPOTHYROIDISM
     Dates: start: 20080101

REACTIONS (5)
  - ANAEMIA [None]
  - ARTHRALGIA [None]
  - COELIAC DISEASE [None]
  - MALAISE [None]
  - SURGERY [None]
